FAERS Safety Report 18608316 (Version 2)
Quarter: 2021Q1

REPORT INFORMATION
  Report Type: Report from Study
  Country: DE (occurrence: DE)
  Receive Date: 20201212
  Receipt Date: 20210312
  Transmission Date: 20210419
  Serious: Yes (Hospitalization, Other)
  Sender: FDA-Public Use
  Company Number: NVSC2020DE324797

PATIENT
  Sex: Female
  Weight: 51 kg

DRUGS (9)
  1. ENBREL [Suspect]
     Active Substance: ETANERCEPT
     Indication: PRODUCT USED FOR UNKNOWN INDICATION
     Dosage: UNK
     Route: 065
  2. ENBREL [Suspect]
     Active Substance: ETANERCEPT
     Dosage: UNK
     Route: 065
     Dates: start: 20200213
  3. ATORVASTATIN ABZ [Concomitant]
     Active Substance: ATORVASTATIN SODIUM
     Indication: PRODUCT USED FOR UNKNOWN INDICATION
     Dosage: 20 MG, QD (0?0?1?0)
     Route: 065
  4. ACETYLSALICYLIC ACID [Concomitant]
     Active Substance: ASPIRIN
     Indication: PRODUCT USED FOR UNKNOWN INDICATION
     Dosage: 100 MG, QD (0?1?0?0)
     Route: 065
  5. NOVOPULMON [Concomitant]
     Active Substance: BUDESONIDE
     Indication: ASTHMA
     Dosage: 200 UG, BID (1?0?1?0)
     Route: 065
  6. COSENTYX [Suspect]
     Active Substance: SECUKINUMAB
     Indication: PSORIASIS
     Dosage: 150 MG, QMO
     Route: 065
     Dates: end: 20200213
  7. STELARA [Concomitant]
     Active Substance: USTEKINUMAB
     Indication: PRODUCT USED FOR UNKNOWN INDICATION
     Dosage: UNK
     Route: 065
  8. VERAPAMIL [Concomitant]
     Active Substance: VERAPAMIL HYDROCHLORIDE
     Indication: PRODUCT USED FOR UNKNOWN INDICATION
     Dosage: 120 MG, QD (1?0?0?0)
     Route: 065
  9. COSENTYX [Suspect]
     Active Substance: SECUKINUMAB
     Indication: PSORIATIC ARTHROPATHY
     Dosage: 300 MG
     Route: 058
     Dates: start: 20160426

REACTIONS (12)
  - Renal impairment [Unknown]
  - Carpal tunnel syndrome [Unknown]
  - Eosinophil count decreased [Unknown]
  - Hypoaesthesia [Unknown]
  - Alanine aminotransferase increased [Unknown]
  - White blood cell count increased [Unknown]
  - Neutrophil count increased [Unknown]
  - Paraesthesia [Recovered/Resolved]
  - Diabetes mellitus [Unknown]
  - Obesity [Unknown]
  - Gait disturbance [Recovered/Resolved]
  - Folate deficiency [Unknown]

NARRATIVE: CASE EVENT DATE: 20200226
